FAERS Safety Report 8673452 (Version 2)
Quarter: 2012Q4

REPORT INFORMATION
  Report Type: 
  Country: CZ (occurrence: CZ)
  Receive Date: 20120719
  Receipt Date: 20120830
  Transmission Date: 20130627
  Serious: Yes (Hospitalization, Other)
  Sender: FDA-Public Use
  Company Number: PHHY2012CZ060607

PATIENT
  Age: 42 Year
  Sex: Female

DRUGS (9)
  1. PACLITAXEL [Suspect]
     Indication: BREAST CANCER
     Dosage: 80 mg/m2, per week
     Route: 042
  2. ONDANSETRON HYDROCHLORIDE [Suspect]
     Indication: PREMEDICATION
     Dosage: 8 mg
     Route: 042
  3. DEXAMETHASONE [Suspect]
     Dosage: 12 mg
     Route: 042
  4. RANITIDINE [Suspect]
     Indication: PREMEDICATION
     Dosage: 150 mg
     Route: 042
  5. CYCLOPHOSPHAMIDE [Suspect]
     Dosage: 600 mg/m2, TIW
     Route: 042
  6. DOCETAXEL ANHYDROUS [Suspect]
     Route: 042
  7. BISULEPIN [Suspect]
     Indication: PREMEDICATION
     Dosage: 2 mg
     Route: 042
  8. DOXORUBICIN [Concomitant]
     Dosage: 60 mg/m2, UNK
  9. LITHIUM [Concomitant]
     Indication: BIPOLAR DISORDER
     Dates: start: 1998, end: 2011

REACTIONS (11)
  - Febrile neutropenia [Recovered/Resolved]
  - Transient psychosis [Recovered/Resolved]
  - Hallucination [Recovered/Resolved]
  - Hallucinations, mixed [Recovered/Resolved]
  - Suicidal ideation [Recovered/Resolved]
  - Anxiety [Recovered/Resolved]
  - Disturbance in attention [Recovered/Resolved]
  - Somatoform disorder [Recovered/Resolved]
  - Dysphemia [Recovered/Resolved]
  - Headache [Recovered/Resolved]
  - Hypoaesthesia [Recovered/Resolved]
